FAERS Safety Report 8932837 (Version 1)
Quarter: 2012Q4

REPORT INFORMATION
  Report Type: Spontaneous
  Country: US (occurrence: None)
  Receive Date: 20121127
  Receipt Date: 20121127
  Transmission Date: 20130627
  Serious: No
  Sender: FDA-Public Use
  Company Number: None

PATIENT
  Age: 39 Year
  Sex: Female
  Weight: 72.58 kg

DRUGS (1)
  1. CYMBALTA 30 MG ELI LILLY [Suspect]
     Indication: DEPRESSION
     Route: 048

REACTIONS (9)
  - Anger [None]
  - Mood swings [None]
  - Suicidal ideation [None]
  - Fear [None]
  - Paraesthesia [None]
  - Sensory disturbance [None]
  - Contusion [None]
  - Swelling [None]
  - Laceration [None]
